FAERS Safety Report 8246482-9 (Version None)
Quarter: 2012Q1

REPORT INFORMATION
  Report Type: 
  Country: None (occurrence: None)
  Receive Date: 20120327
  Receipt Date: 20120227
  Transmission Date: 20120608
  Serious: Yes (Death, Hospitalization)
  Sender: FDA-Public Use
  Company Number: 2012PROUSA01074

PATIENT
  Age: 65 Year
  Sex: Male
  Weight: 56.3 kg

DRUGS (11)
  1. PROVENGE [Suspect]
     Indication: PROSTATE CANCER METASTATIC
     Dosage: 250 ML, SINGLE, INTRAVENOUS
     Route: 042
     Dates: start: 20120119, end: 20120119
  2. FLUOXETINE [Concomitant]
  3. FOLIC ACID [Concomitant]
  4. OXYBUTYNIN [Concomitant]
  5. OMEPRAZOLE [Concomitant]
  6. PROVENGE [Suspect]
     Dosage: 250 ML, SINGLE, INTRAVENOUS
     Route: 042
     Dates: start: 20120202, end: 20120202
  7. PROCHLORPERAZINE MALEATE [Concomitant]
  8. POTASSIUM CHLORIDE [Concomitant]
  9. DEXAMETHASONE [Concomitant]
  10. LEVOTHYROXINE SODIUM [Concomitant]
  11. ABIRATERONE (ABIRATERONE) [Concomitant]

REACTIONS (3)
  - HAEMORRHAGE INTRACRANIAL [None]
  - SKULL FRACTURE [None]
  - FALL [None]
